FAERS Safety Report 21771264 (Version 1)
Quarter: 2022Q4

REPORT INFORMATION
  Report Type: Other
  Country: None (occurrence: GB)
  Receive Date: 20221223
  Receipt Date: 20221223
  Transmission Date: 20230112
  Serious: Yes (Death, Other)
  Sender: FDA-Public Use
  Company Number: GB-Nuvo Pharmaceuticals Inc-2136127

PATIENT
  Age: 44 Year
  Sex: Male

DRUGS (11)
  1. DIAZEPAM [Suspect]
     Active Substance: DIAZEPAM
     Indication: Product used for unknown indication
     Route: 065
  2. GABAPENTIN [Suspect]
     Active Substance: GABAPENTIN
     Route: 065
  3. METHADONE [Suspect]
     Active Substance: METHADONE HYDROCHLORIDE
     Route: 065
  4. MIDOMAFETAMINE [Suspect]
     Active Substance: MIDOMAFETAMINE
     Route: 065
  5. TENAMFETAMINE [Suspect]
     Active Substance: TENAMFETAMINE
     Route: 065
  6. PREGABALIN [Suspect]
     Active Substance: PREGABALIN
     Route: 065
  7. MIRTAZAPINE [Suspect]
     Active Substance: MIRTAZAPINE
     Route: 065
  8. BENZOYLECGONINE [Suspect]
     Active Substance: BENZOYLECGONINE
     Route: 065
  9. MORPHINE SULFATE [Suspect]
     Active Substance: MORPHINE SULFATE
     Route: 065
  10. XANAX [Suspect]
     Active Substance: ALPRAZOLAM
     Route: 065
  11. FLUALPRAZOLAM [Suspect]
     Active Substance: FLUALPRAZOLAM
     Route: 065

REACTIONS (1)
  - Toxicity to various agents [Fatal]
